FAERS Safety Report 9438232 (Version 1)
Quarter: 2013Q3

REPORT INFORMATION
  Report Type: Spontaneous
  Country: US (occurrence: US)
  Receive Date: 20130802
  Receipt Date: 20130802
  Transmission Date: 20140515
  Serious: No
  Sender: FDA-Public Use
  Company Number: US-BRISTOL-MYERS SQUIBB COMPANY-16987752

PATIENT
  Age: 80 Year
  Sex: Female

DRUGS (3)
  1. COUMADIN [Suspect]
     Indication: KNEE ARTHROPLASTY
  2. LIPITOR [Concomitant]
  3. CARVEDILOL [Concomitant]

REACTIONS (1)
  - Therapeutic response decreased [Unknown]
